FAERS Safety Report 24247108 (Version 1)
Quarter: 2024Q3

REPORT INFORMATION
  Report Type: Spontaneous
  Country: US (occurrence: US)
  Receive Date: 20240826
  Receipt Date: 20240826
  Transmission Date: 20241017
  Serious: Yes (Other)
  Sender: JOHNSON AND JOHNSON
  Company Number: US-JNJFOC-20240853437

PATIENT
  Age: 43 Year
  Sex: Female
  Weight: 170 kg

DRUGS (28)
  1. OPSUMIT [Suspect]
     Active Substance: MACITENTAN
     Indication: Product used for unknown indication
     Route: 048
     Dates: end: 202407
  2. TREPROSTINIL [Suspect]
     Active Substance: TREPROSTINIL
     Indication: Pulmonary arterial hypertension
     Route: 058
  3. TREPROSTINIL [Suspect]
     Active Substance: TREPROSTINIL
     Route: 058
     Dates: start: 20231114
  4. DICYCLOMINE [Concomitant]
     Active Substance: DICYCLOMINE HYDROCHLORIDE
  5. LEVOTHYROXINE [Concomitant]
     Active Substance: LEVOTHYROXINE\LEVOTHYROXINE SODIUM
  6. FAMOTIDINE [Concomitant]
     Active Substance: FAMOTIDINE
  7. ZYRTEC [Concomitant]
     Active Substance: CETIRIZINE HYDROCHLORIDE
  8. FOLIC ACID [Concomitant]
     Active Substance: FOLIC ACID
  9. POTASSIUM CHLORIDE [Concomitant]
     Active Substance: POTASSIUM CHLORIDE
  10. PANTOPRAZOLE [Concomitant]
     Active Substance: PANTOPRAZOLE
  11. LAMOTRIGINE [Concomitant]
     Active Substance: LAMOTRIGINE
  12. TADALAFIL [Concomitant]
     Active Substance: TADALAFIL
  13. ALBUTEROL SULFATE [Concomitant]
     Active Substance: ALBUTEROL SULFATE
  14. TYLENOL [Concomitant]
     Active Substance: ACETAMINOPHEN
  15. TRAMADOL [Concomitant]
     Active Substance: TRAMADOL\TRAMADOL HYDROCHLORIDE
  16. BENTYL [Concomitant]
     Active Substance: DICYCLOMINE HYDROCHLORIDE
  17. LEVOFLOXACIN [Concomitant]
     Active Substance: LEVOFLOXACIN
  18. VITAMIN B12 [Concomitant]
     Active Substance: CYANOCOBALAMIN
  19. OXYGEN [Concomitant]
     Active Substance: OXYGEN
  20. SPIRIVA RESPIMAT [Concomitant]
     Active Substance: TIOTROPIUM BROMIDE
  21. CYCLOBENZAPRINE [Concomitant]
     Active Substance: CYCLOBENZAPRINE
  22. FUROSEMIDE [Concomitant]
     Active Substance: FUROSEMIDE
  23. GABAPENTIN [Concomitant]
     Active Substance: GABAPENTIN
  24. LOPERAMIDE [Concomitant]
     Active Substance: LOPERAMIDE
  25. VITAMIN D3 [Concomitant]
     Active Substance: CHOLECALCIFEROL
  26. CYMBALTA [Concomitant]
     Active Substance: DULOXETINE HYDROCHLORIDE
  27. SYMBICORT [Concomitant]
     Active Substance: BUDESONIDE\FORMOTEROL FUMARATE DIHYDRATE
  28. MOTRIN IB [Concomitant]
     Active Substance: IBUPROFEN

REACTIONS (2)
  - Syncope [Unknown]
  - Product use issue [Unknown]

NARRATIVE: CASE EVENT DATE: 20240701
